FAERS Safety Report 23688443 (Version 1)
Quarter: 2024Q1

REPORT INFORMATION
  Report Type: Spontaneous
  Country: US (occurrence: US)
  Receive Date: 20240329
  Receipt Date: 20240329
  Transmission Date: 20240409
  Serious: Yes (Other)
  Sender: FDA-Public Use
  Company Number: US-VIIV HEALTHCARE LIMITED-US2024036447

PATIENT
  Age: 24 Year
  Sex: Male

DRUGS (11)
  1. RILPIVIRINE [Suspect]
     Active Substance: RILPIVIRINE
     Indication: HIV infection
     Dosage: UNK, MO,600 AND 900MG/3ML
     Route: 030
  2. RILPIVIRINE [Suspect]
     Active Substance: RILPIVIRINE
     Dosage: UNK, Q2M, 600 AND 900MG/3ML
     Route: 030
  3. CABOTEGRAVIR [Suspect]
     Active Substance: CABOTEGRAVIR
     Indication: HIV infection
     Dosage: UNK, MO,600 AND 900MG/3ML
     Route: 030
  4. CABOTEGRAVIR [Suspect]
     Active Substance: CABOTEGRAVIR
     Dosage: UNK, Q2M, 600 AND 900MG/3ML
     Route: 030
  5. DOVATO [Suspect]
     Active Substance: DOLUTEGRAVIR SODIUM\LAMIVUDINE
     Indication: HIV infection
     Dosage: 1 DF, QD 50/300MG FOR 30 DAYS
     Route: 048
  6. TETANUS TOXOID, REDUCED DIPHTHERIA TOXOID AND ACELLULAR PERTUSSIS VACC [Suspect]
     Active Substance: TETANUS TOXOID, REDUCED DIPHTHERIA TOXOID AND ACELLULAR PERTUSSIS VACCINE ADSORBED, TDAP
     Indication: Prophylaxis
     Route: 065
  7. HUMAN PAPILLOMAVIRUS QUADRIVALENT (TYPES 6, 11, 16, AND 18) VACCINE, R [Suspect]
     Active Substance: HUMAN PAPILLOMAVIRUS QUADRIVALENT (TYPES 6, 11, 16, AND 18) VACCINE, RECOMBINANT
     Indication: Prophylaxis
     Route: 065
     Dates: start: 20220803
  8. MENINGOCOCCAL POLYSACCHARIDE VACCINE A NOS [Suspect]
     Active Substance: MENINGOCOCCAL POLYSACCHARIDE VACCINE A\NEISSERIA MENINGITIDIS GROUP A CAPSULAR POLYSACCHARIDE ANTIGE
     Indication: Prophylaxis
     Route: 065
     Dates: start: 20220324
  9. MEASLES-MUMPS-RUBELLA VIRUS VACCINE [Suspect]
     Active Substance: MEASLES-MUMPS-RUBELLA VIRUS VACCINE
     Indication: Prophylaxis
     Route: 065
  10. INFLUENZA VIRUS VACCINE [Suspect]
     Active Substance: INFLUENZA VIRUS VACCINE
     Indication: Prophylaxis
     Dosage: UNK
     Route: 065
     Dates: start: 20231120
  11. TRIAMCINOLONE ACETONIDE [Suspect]
     Active Substance: TRIAMCINOLONE ACETONIDE
     Indication: Rash
     Dosage: UNK, UNK, TWO TIMES A WEEK AS NEEDED
     Route: 061

REACTIONS (21)
  - Bipolar disorder [Unknown]
  - Major depression [Unknown]
  - Syphilis [Unknown]
  - Dry skin [Unknown]
  - Abdominal pain [Unknown]
  - Diarrhoea [Unknown]
  - Tachycardia [Unknown]
  - Anxiety [Unknown]
  - Post-traumatic stress disorder [Unknown]
  - Gynaecomastia [Unknown]
  - Rash [Unknown]
  - Nausea [Unknown]
  - Vomiting [Unknown]
  - Palpitations [Unknown]
  - Heart rate increased [Unknown]
  - Night sweats [Unknown]
  - Hot flush [Unknown]
  - Muscle spasms [Unknown]
  - Stress [Unknown]
  - Product dose omission issue [Unknown]
  - Product use issue [Unknown]
